FAERS Safety Report 7767445-3 (Version None)
Quarter: 2011Q3

REPORT INFORMATION
  Report Type: 
  Country: None (occurrence: None)
  Receive Date: 20110922
  Receipt Date: 20100902
  Transmission Date: 20111222
  Serious: No
  Sender: FDA-Public Use
  Company Number: US-ASTRAZENECA-2010SE41543

PATIENT
  Age: 66 Year
  Sex: Male

DRUGS (5)
  1. QUETIAPINE [Interacting]
     Route: 048
  2. OMEPRAZOLE [Interacting]
     Route: 048
  3. OMEPRAZOLE [Interacting]
     Indication: DYSPEPSIA
     Route: 048
  4. QUETIAPINE [Suspect]
     Indication: SCHIZOAFFECTIVE DISORDER
     Route: 048
  5. HALOPERIDOL [Concomitant]

REACTIONS (2)
  - DRUG INTERACTION [None]
  - MENTAL IMPAIRMENT [None]
